FAERS Safety Report 5004196-2 (Version None)
Quarter: 2006Q2

REPORT INFORMATION
  Report Type: 
  Country: None (occurrence: None)
  Receive Date: 20060517
  Receipt Date: 20051011
  Transmission Date: 20061013
  Serious: Yes (Other)
  Sender: FDA-Public Use
  Company Number: PHBS2005NO15027

PATIENT
  Age: 45 Year
  Sex: Female

DRUGS (6)
  1. ZOMETA [Suspect]
     Indication: METASTASES TO BONE
     Dosage: 4 MG EVERY 4TH WEEK
     Route: 042
     Dates: start: 20030601, end: 20050826
  2. TAMOXIFEN CITRATE [Concomitant]
     Route: 065
  3. DOLCONTIN [Concomitant]
     Route: 065
  4. CELEBRA [Concomitant]
     Route: 065
  5. LOSEC [Concomitant]
     Route: 065
  6. CIPRAMIL [Concomitant]
     Route: 065

REACTIONS (7)
  - BONE DISORDER [None]
  - IMPAIRED HEALING [None]
  - INFECTION [None]
  - OSTEONECROSIS [None]
  - PAIN [None]
  - SWELLING [None]
  - TOOTH EXTRACTION [None]
